FAERS Safety Report 17270182 (Version 1)
Quarter: 2020Q1

REPORT INFORMATION
  Report Type: Spontaneous
  Country: IS (occurrence: IS)
  Receive Date: 20200114
  Receipt Date: 20200114
  Transmission Date: 20200409
  Serious: Yes (Other)
  Sender: FDA-Public Use
  Company Number: IS-SAMSUNG BIOEPIS-SB-2020-00338

PATIENT
  Age: 35 Year
  Sex: Female

DRUGS (2)
  1. PANODIL [Concomitant]
     Active Substance: ACETAMINOPHEN
     Indication: PRODUCT USED FOR UNKNOWN INDICATION
     Dosage: UNKNOWN
     Route: 065
  2. FLIXABI [Suspect]
     Active Substance: INFLIXIMAB
     Indication: PRODUCT USED FOR UNKNOWN INDICATION
     Dosage: UNKNOWN
     Route: 065
     Dates: start: 20190408

REACTIONS (7)
  - Drug ineffective [Unknown]
  - Gastrointestinal disorder [Unknown]
  - Secretion discharge [Unknown]
  - Disease progression [Unknown]
  - Rectal haemorrhage [Unknown]
  - Oedema peripheral [Unknown]
  - Fatigue [Unknown]
